FAERS Safety Report 9351543 (Version 4)
Quarter: 2013Q3

REPORT INFORMATION
  Report Type: Report from Study
  Country: GB (occurrence: GB)
  Receive Date: 20130617
  Receipt Date: 20130902
  Transmission Date: 20140515
  Serious: Yes (Death, Hospitalization)
  Sender: FDA-Public Use
  Company Number: PHHO2013GB007903

PATIENT
  Age: 82 Year
  Sex: Female
  Weight: 61.5 kg

DRUGS (9)
  1. AFINITOR [Suspect]
     Indication: BREAST CANCER METASTATIC
     Dosage: 10 MG, QD
     Route: 048
     Dates: start: 20130605, end: 20130610
  2. EXEMESTANE [Concomitant]
     Indication: BREAST CANCER METASTATIC
     Dosage: 25 MG, QD
     Route: 048
     Dates: start: 20130605, end: 20130610
  3. EXEMESTANE [Concomitant]
     Dosage: 25 MG, QD
     Route: 048
     Dates: start: 20130611
  4. BENDROFLUMETHIAZIDE [Concomitant]
     Indication: HYPERTENSION
     Dosage: 2.5 MG, QD
     Route: 048
  5. LOSEC [Concomitant]
     Indication: PROPHYLAXIS AGAINST GASTROINTESTINAL ULCER
     Dosage: 20 MG, NOCTL
     Route: 048
  6. BRUFEN [Concomitant]
     Indication: PAIN
     Dosage: 400 MG, NOCTL
     Route: 048
  7. SOLPADOL [Concomitant]
     Indication: PAIN
     Dosage: 30/500 NOCTL
     Route: 048
  8. CIPROXIN [Concomitant]
     Indication: URINARY TRACT INFECTION
     Dosage: 250 MG, QD
     Route: 048
     Dates: start: 20130606
  9. CYCLIZINE [Concomitant]
     Dosage: 50 MG, QD
     Route: 048

REACTIONS (5)
  - Malignant neoplasm progression [Fatal]
  - Haematemesis [Not Recovered/Not Resolved]
  - Epistaxis [Not Recovered/Not Resolved]
  - Anaemia [Not Recovered/Not Resolved]
  - Abdominal pain [Recovered/Resolved]
